FAERS Safety Report 5827190-8 (Version None)
Quarter: 2008Q3

REPORT INFORMATION
  Report Type: 
  Country: None (occurrence: None)
  Receive Date: 20080725
  Receipt Date: 20080714
  Transmission Date: 20090109
  Serious: Yes (Death, Other)
  Sender: FDA-Public Use
  Company Number: S08-UKI-02214-01

PATIENT
  Age: 70 Year
  Sex: Male

DRUGS (3)
  1. MEMANTINE HCL [Suspect]
     Indication: NYSTAGMUS
     Dosage: 20 MG (20 MG, 1 IN 1 D), ORAL
     Route: 048
  2. SIMVASTATIN [Concomitant]
  3. PERINDOPRIL ERBUMINE [Concomitant]

REACTIONS (7)
  - COMPLETED SUICIDE [None]
  - DIZZINESS [None]
  - MALAISE [None]
  - MYALGIA [None]
  - OSCILLOPSIA [None]
  - QUALITY OF LIFE DECREASED [None]
  - VERTIGO [None]
